FAERS Safety Report 26092126 (Version 2)
Quarter: 2025Q4

REPORT INFORMATION
  Report Type: Spontaneous
  Country: US (occurrence: US)
  Receive Date: 20251126
  Receipt Date: 20251211
  Transmission Date: 20260117
  Serious: Yes (Other)
  Sender: CHIMERIX
  Company Number: US-CHIMERIX-US-CHI-25-000533

PATIENT
  Sex: Female

DRUGS (1)
  1. MODEYSO [Suspect]
     Active Substance: DORDAVIPRONE
     Indication: Brain stem glioma
     Dosage: UNK, UNK

REACTIONS (1)
  - Radiation necrosis [Unknown]
